FAERS Safety Report 17413196 (Version 2)
Quarter: 2021Q3

REPORT INFORMATION
  Report Type: Spontaneous
  Country: CH (occurrence: CH)
  Receive Date: 20200213
  Receipt Date: 20210803
  Transmission Date: 20211014
  Serious: Yes (Hospitalization)
  Sender: FDA-Public Use
  Company Number: CH-ROCHE-2543013

PATIENT
  Age: 47 Year
  Sex: Male

DRUGS (30)
  1. BACTRIM [Suspect]
     Active Substance: SULFAMETHOXAZOLE\TRIMETHOPRIM
     Indication: PRODUCT USED FOR UNKNOWN INDICATION
     Route: 048
     Dates: start: 20200117, end: 20200120
  2. DAFALGAN [Suspect]
     Active Substance: ACETAMINOPHEN
     Dosage: IN RESERVE
     Route: 065
     Dates: start: 20200115, end: 20200120
  3. CALCIMAGON D3 [Concomitant]
     Active Substance: CALCIUM\CHOLECALCIFEROL
     Dates: start: 20200117, end: 20200122
  4. TEMGESIC [Suspect]
     Active Substance: BUPRENORPHINE HYDROCHLORIDE
     Route: 060
     Dates: start: 20200117, end: 20200118
  5. URISPAS [Concomitant]
     Active Substance: FLAVOXATE HYDROCHLORIDE
     Dates: start: 20200116, end: 20200122
  6. PREDNISONE. [Concomitant]
     Active Substance: PREDNISONE
     Dates: start: 20200118, end: 20200118
  7. IMUREK [Concomitant]
     Active Substance: AZATHIOPRINE
  8. MYFORTIC [Suspect]
     Active Substance: MYCOPHENOLATE SODIUM
     Indication: PRODUCT USED FOR UNKNOWN INDICATION
     Route: 048
     Dates: start: 20200113, end: 20200122
  9. CALCIPARINE [Suspect]
     Active Substance: HEPARIN CALCIUM
     Indication: PRODUCT USED FOR UNKNOWN INDICATION
     Route: 042
     Dates: start: 20200115, end: 20200118
  10. SIMULECT [Concomitant]
     Active Substance: BASILIXIMAB
     Dates: start: 20200114, end: 20200118
  11. FAMOTIDIN [Concomitant]
     Active Substance: FAMOTIDINE
     Dates: start: 20200120, end: 20200121
  12. FOLIC ACID. [Concomitant]
     Active Substance: FOLIC ACID
     Dosage: DATE AND TIME OF LAST ASMINISTRATION: 13/JAN/2020
  13. RENVELA [Concomitant]
     Active Substance: SEVELAMER CARBONATE
     Dosage: DATE AND TIME OF LAST ADMINISTATION: 13/JAN/2020
  14. TEMESTA [Concomitant]
  15. RIOPAN [MAGALDRATE] [Concomitant]
     Active Substance: MAGALDRATE
     Dates: start: 20200120, end: 20200120
  16. PREVYMIS [Concomitant]
     Active Substance: LETERMOVIR
  17. TEMGESIC [Suspect]
     Active Substance: BUPRENORPHINE HYDROCHLORIDE
     Indication: PRODUCT USED FOR UNKNOWN INDICATION
     Route: 060
     Dates: start: 20200117, end: 20200118
  18. TORASEMIDE [Concomitant]
     Active Substance: TORSEMIDE
     Dosage: DATE AND TIME OF LAST ADMINISTRATION; 20200113
  19. PREDNISONE. [Concomitant]
     Active Substance: PREDNISONE
     Dosage: DATE OF TIME AND START OF DRUG: 20200119
  20. PROGRAF [Suspect]
     Active Substance: TACROLIMUS
     Indication: PRODUCT USED FOR UNKNOWN INDICATION
     Route: 065
     Dates: start: 20200112, end: 20200122
  21. DAFALGAN [Suspect]
     Active Substance: ACETAMINOPHEN
     Indication: PRODUCT USED FOR UNKNOWN INDICATION
     Route: 065
     Dates: start: 20200115, end: 20200120
  22. VALGANCICLOVIR. [Suspect]
     Active Substance: VALGANCICLOVIR
     Indication: PRODUCT USED FOR UNKNOWN INDICATION
     Route: 048
     Dates: start: 20200117, end: 20200121
  23. LASIX [Concomitant]
     Active Substance: FUROSEMIDE
     Dates: start: 20200114, end: 20200118
  24. TORASEMIDE [Concomitant]
     Active Substance: TORSEMIDE
     Dates: start: 20200119, end: 20200120
  25. SANDIMMUN NEORAL [Concomitant]
     Active Substance: CYCLOSPORINE
     Dosage: DATE AND TIME OF START OF DRUG: 22/JAN/2020
  26. SOLU?MEDROL [Concomitant]
     Active Substance: METHYLPREDNISOLONE SODIUM SUCCINATE
     Route: 042
     Dates: start: 20200114, end: 20200114
  27. SOLU?MEDROL [Concomitant]
     Active Substance: METHYLPREDNISOLONE SODIUM SUCCINATE
     Dosage: IN TOTAL
     Route: 042
     Dates: start: 20200116, end: 20200116
  28. ROCEPHIN [Suspect]
     Active Substance: CEFTRIAXONE SODIUM
     Indication: PRODUCT USED FOR UNKNOWN INDICATION
     Route: 065
     Dates: start: 20200114, end: 20200114
  29. NEXIUM MUPS [Suspect]
     Active Substance: ESOMEPRAZOLE
     Indication: PRODUCT USED FOR UNKNOWN INDICATION
     Dosage: DEFINITION OF THE TIME INTERVAL UNIT: AS NESESSARY: 20/JAN/2020
     Route: 048
  30. SOLU?MEDROL [Concomitant]
     Active Substance: METHYLPREDNISOLONE SODIUM SUCCINATE
     Dosage: IN TOTAL
     Route: 042
     Dates: start: 20200115, end: 20200115

REACTIONS (1)
  - Cell death [Recovered/Resolved]

NARRATIVE: CASE EVENT DATE: 20200120
